FAERS Safety Report 17111167 (Version 3)
Quarter: 2020Q1

REPORT INFORMATION
  Report Type: Spontaneous
  Country: DE (occurrence: DE)
  Receive Date: 20191204
  Receipt Date: 20200316
  Transmission Date: 20200409
  Serious: Yes (Hospitalization, Other)
  Sender: FDA-Public Use
  Company Number: DE-GALDERMA-DE19071405

PATIENT
  Sex: Male
  Weight: 104 kg

DRUGS (1)
  1. ORAYCEA [Suspect]
     Active Substance: DOXYCYCLINE
     Indication: PAPULOPUSTULAR ROSACEA
     Dosage: 40 MG
     Route: 048
     Dates: start: 2018, end: 20191120

REACTIONS (3)
  - Thyroid mass [Recovered/Resolved]
  - Hyperthyroidism [Recovered/Resolved]
  - Goitre [Recovered/Resolved]
